FAERS Safety Report 4831871-2 (Version None)
Quarter: 2005Q4

REPORT INFORMATION
  Report Type: 
  Country: None (occurrence: None)
  Receive Date: 20051116
  Receipt Date: 20051109
  Transmission Date: 20060501
  Serious: Yes (Other)
  Sender: FDA-Public Use
  Company Number: 2005RR-01091

PATIENT
  Age: 8 Year
  Sex: Male

DRUGS (3)
  1. LORATADINE (LORATADINE) TABLET, 10MG [Suspect]
     Indication: RHINITIS ALLERGIC
     Dosage: 10 MG QD ORAL
     Route: 048
  2. UNSPECIFIED B2-ANTAGONISTS [Concomitant]
  3. CORTICOSTEROIDS [Concomitant]

REACTIONS (4)
  - BIOPSY SKIN ABNORMAL [None]
  - DRUG ERUPTION [None]
  - ERYTHEMA [None]
  - PERIORBITAL OEDEMA [None]
